FAERS Safety Report 6424042-X (Version None)
Quarter: 2009Q4

REPORT INFORMATION
  Report Type: 
  Country: None (occurrence: None)
  Receive Date: 20091102
  Receipt Date: 20091019
  Transmission Date: 20100525
  Serious: Yes (Hospitalization)
  Sender: FDA-Public Use
  Company Number: IN-MYLANLABS-2009S1018222

PATIENT
  Age: 13 Year
  Sex: Male

DRUGS (3)
  1. AZITHROMYCIN [Suspect]
     Indication: INFECTION
     Dosage: IV AZITHROMYCIN 500MG, SINGLE DOSE INFUSED IN 1 HOUR
     Route: 041
  2. PREDNISOLONE [Concomitant]
     Indication: MYASTHENIA GRAVIS
     Dosage: PREDNISOLONE 10 MG/D
     Route: 048
  3. PYRIDOSTIGMINE BROMIDE [Concomitant]
     Indication: MYASTHENIA GRAVIS
     Dosage: PYRIDOSTIGMINE 60MG 3 TIMES PER DAY
     Route: 048

REACTIONS (1)
  - MYASTHENIA GRAVIS CRISIS [None]
